FAERS Safety Report 21841321 (Version 1)
Quarter: 2023Q1

REPORT INFORMATION
  Report Type: Spontaneous
  Country: US (occurrence: US)
  Receive Date: 20230110
  Receipt Date: 20230110
  Transmission Date: 20230417
  Serious: No
  Sender: FDA-Public Use
  Company Number: US-009507513-2212USA011255

PATIENT
  Age: 6 Year
  Sex: Male

DRUGS (2)
  1. NOXAFIL [Suspect]
     Active Substance: POSACONAZOLE
     Indication: Pneumonia fungal
     Dosage: UNK
  2. TERBINAFINE [Concomitant]
     Active Substance: TERBINAFINE
     Indication: Pneumonia fungal

REACTIONS (1)
  - Product use in unapproved indication [Unknown]
